FAERS Safety Report 16936178 (Version 1)
Quarter: 2019Q4

REPORT INFORMATION
  Report Type: Spontaneous
  Country: US (occurrence: US)
  Receive Date: 20190827
  Receipt Date: 20190827
  Transmission Date: 20200122
  Serious: Yes (Hospitalization)
  Sender: FDA-Public Use
  Company Number: None

PATIENT
  Age: 32 Year
  Sex: Male
  Weight: 75.3 kg

DRUGS (2)
  1. VANCOMYCIN [Suspect]
     Active Substance: VANCOMYCIN
     Indication: ENDOCARDITIS
     Route: 042
     Dates: start: 20190719, end: 20190814
  2. METRONIDAZOLE. [Suspect]
     Active Substance: METRONIDAZOLE
     Indication: ENDOCARDITIS
     Route: 042
     Dates: start: 20190721, end: 20190817

REACTIONS (10)
  - Rash [None]
  - Renal impairment [None]
  - Tooth abscess [None]
  - Pyrexia [None]
  - Transaminases increased [None]
  - Drug reaction with eosinophilia and systemic symptoms [None]
  - Endocarditis [None]
  - Hepatic enzyme increased [None]
  - Pruritus [None]
  - Eosinophilia [None]

NARRATIVE: CASE EVENT DATE: 20190819
